FAERS Safety Report 17830994 (Version 4)
Quarter: 2025Q3

REPORT INFORMATION
  Report Type: Spontaneous
  Country: US (occurrence: US)
  Receive Date: 20200527
  Receipt Date: 20250916
  Transmission Date: 20251021
  Serious: Yes (Death, Congenital Anomaly, Other)
  Sender: PURDUE
  Company Number: US-PURDUE PHARMA-USA-2020-0152847

PATIENT
  Sex: Female

DRUGS (2)
  1. OXYCONTIN [Suspect]
     Active Substance: OXYCODONE HYDROCHLORIDE
     Indication: Pain
     Dosage: 80 MG QID (FOUR TIMES A DAY FOR YEARS)
     Route: 048
  2. OXYCODONE HYDROCHLORIDE [Suspect]
     Active Substance: OXYCODONE HYDROCHLORIDE
     Indication: Pain
     Dosage: 80 MG QID (FOUR TIMES A DAY FOR YEARS)
     Route: 048

REACTIONS (8)
  - Renal disorder [Fatal]
  - Drug dependence [Fatal]
  - Multiple congenital abnormalities [Unknown]
  - Acute kidney injury [Unknown]
  - Respiratory failure [Unknown]
  - Overdose [Unknown]
  - Respiratory disorder [Unknown]
  - Developmental delay [Unknown]
